FAERS Safety Report 25725766 (Version 2)
Quarter: 2025Q3

REPORT INFORMATION
  Report Type: Spontaneous
  Country: BR (occurrence: BR)
  Receive Date: 20250826
  Receipt Date: 20250912
  Transmission Date: 20251021
  Serious: Yes (Death, Other)
  Sender: GLAXOSMITHKLINE
  Company Number: BR-GSK-BR2025AMR109100

PATIENT
  Age: 8 Year
  Sex: Female

DRUGS (4)
  1. SERETIDE [Suspect]
     Active Substance: FLUTICASONE PROPIONATE\SALMETEROL XINAFOATE
     Indication: Asthma
     Dosage: 1 PUFF(S), BID
  2. ALBUTEROL [Suspect]
     Active Substance: ALBUTEROL
     Indication: Product used for unknown indication
  3. MOMETASONE FUROATE [Suspect]
     Active Substance: MOMETASONE FUROATE
     Indication: Hypersensitivity
  4. SALSALATE [Suspect]
     Active Substance: SALSALATE
     Indication: Prophylaxis

REACTIONS (6)
  - Sudden death [Fatal]
  - Asthma [Fatal]
  - Toxicity to various agents [Fatal]
  - Anaphylactic shock [Fatal]
  - Cardio-respiratory arrest [Unknown]
  - Product use issue [Unknown]

NARRATIVE: CASE EVENT DATE: 20250619
